FAERS Safety Report 7583941-6 (Version None)
Quarter: 2011Q2

REPORT INFORMATION
  Report Type: 
  Country: None (occurrence: None)
  Receive Date: 20110630
  Receipt Date: 20110620
  Transmission Date: 20111010
  Serious: Yes (Hospitalization, Other)
  Sender: FDA-Public Use
  Company Number: US-ELI_LILLY_AND_COMPANY-US201002000267

PATIENT
  Sex: Female

DRUGS (8)
  1. PAROXETINE HCL [Concomitant]
     Dosage: 30 MG, EACH EVENING
  2. SIMVASTATIN [Concomitant]
     Dosage: 40 MG, QD
  3. BYETTA [Suspect]
     Dosage: 10 UG, BID
     Route: 058
     Dates: end: 20081104
  4. DIOVAN [Concomitant]
     Dosage: 40 MG, QD
     Route: 048
  5. PRECOSE [Concomitant]
     Dosage: 25 MG, TID
  6. METFORMIN HCL [Concomitant]
     Dosage: 1000 MG, BID
     Route: 048
     Dates: end: 20081104
  7. LOVAZA [Concomitant]
     Dosage: 2 G, BID
  8. NOVOLOG MIX 70/30 [Concomitant]
     Dosage: 25 U, BID

REACTIONS (6)
  - OFF LABEL USE [None]
  - NEPHROPATHY [None]
  - SUPRAVENTRICULAR TACHYCARDIA [None]
  - PANCREATITIS [None]
  - TACHYCARDIA [None]
  - INTENTIONAL DRUG MISUSE [None]
